FAERS Safety Report 5195095-4 (Version None)
Quarter: 2006Q4

REPORT INFORMATION
  Report Type: 
  Country: None (occurrence: None)
  Receive Date: 20061229
  Receipt Date: 20050920
  Transmission Date: 20070319
  Serious: Yes (Death)
  Sender: FDA-Public Use
  Company Number: US-SHR-US-2005-019576

PATIENT
  Age: 59 Year
  Sex: Female
  Weight: 61.224 kg

DRUGS (2)
  1. BETASERON [Suspect]
     Indication: RELAPSING-REMITTING MULTIPLE SCLEROSIS
     Dosage: 8 MIU, EVERY 2D
     Route: 058
     Dates: start: 20050101, end: 20050201
  2. COUMADIN [Suspect]

REACTIONS (1)
  - CARDIAC DISORDER [None]
